FAERS Safety Report 7509228-5 (Version None)
Quarter: 2011Q2

REPORT INFORMATION
  Report Type: 
  Country: None (occurrence: None)
  Receive Date: 20110527
  Receipt Date: 20110520
  Transmission Date: 20111010
  Serious: Yes (Death)
  Sender: FDA-Public Use
  Company Number: IT-ROCHE-745918

PATIENT
  Sex: Female

DRUGS (9)
  1. HERCEPTIN [Suspect]
     Route: 042
     Dates: start: 20100701, end: 20100801
  2. TYKERB [Suspect]
     Route: 048
     Dates: start: 20100301, end: 20100701
  3. LANOXIN [Concomitant]
     Dosage: ROUTE:OS
     Route: 048
     Dates: start: 20101025, end: 20101102
  4. HERCEPTIN [Suspect]
     Route: 042
     Dates: start: 20100901, end: 20101001
  5. HERCEPTIN [Suspect]
     Route: 042
     Dates: start: 20091101, end: 20100201
  6. HERCEPTIN [Suspect]
     Route: 042
     Dates: start: 20100924, end: 20101102
  7. PIPERACILLIN [Concomitant]
     Route: 042
     Dates: start: 20101102, end: 20101103
  8. HERCEPTIN [Suspect]
     Route: 042
     Dates: start: 20100801, end: 20100901
  9. TYKERB [Suspect]
     Dosage: FREQUENCY: DAILY, ROUTE: OS
     Route: 048
     Dates: start: 20100924, end: 20101102

REACTIONS (4)
  - ATRIAL FIBRILLATION [None]
  - STOMATITIS [None]
  - TUMOUR ASSOCIATED FEVER [None]
  - DIARRHOEA [None]
